FAERS Safety Report 11044262 (Version 2)
Quarter: 2015Q3

REPORT INFORMATION
  Report Type: Spontaneous
  Country: NL (occurrence: NL)
  Receive Date: 20150417
  Receipt Date: 20150706
  Transmission Date: 20151125
  Serious: Yes (Death)
  Sender: FDA-Public Use
  Company Number: NL-SA-2015SA046270

PATIENT
  Age: 68 Year
  Sex: Male

DRUGS (1)
  1. ALEMTUZUMAB [Suspect]
     Active Substance: ALEMTUZUMAB
     Indication: MYCOSIS FUNGOIDES
     Route: 058
     Dates: start: 201001, end: 201008

REACTIONS (2)
  - Disease progression [Fatal]
  - Off label use [Unknown]
